FAERS Safety Report 8075607-3 (Version None)
Quarter: 2012Q1

REPORT INFORMATION
  Report Type: 
  Country: None (occurrence: None)
  Receive Date: 20120127
  Receipt Date: 20111104
  Transmission Date: 20120608
  Serious: Yes (Disabling)
  Sender: FDA-Public Use
  Company Number: CA-JNJFOC-20120107607

PATIENT
  Sex: Female
  Weight: 60.7 kg

DRUGS (4)
  1. CELEXA [Concomitant]
     Route: 065
  2. CALCIUM [Concomitant]
     Route: 065
  3. CALCIUM PHOSPHATE [Concomitant]
     Route: 065
  4. REMICADE [Suspect]
     Indication: COLITIS ULCERATIVE
     Route: 042
     Dates: start: 20091119

REACTIONS (4)
  - FLATULENCE [None]
  - ABDOMINAL DISTENSION [None]
  - FATIGUE [None]
  - ABNORMAL LOSS OF WEIGHT [None]
